FAERS Safety Report 4990591-4 (Version None)
Quarter: 2006Q2

REPORT INFORMATION
  Report Type: 
  Country: None (occurrence: None)
  Receive Date: 20060427
  Receipt Date: 20060413
  Transmission Date: 20061013
  Serious: Yes (Other)
  Sender: FDA-Public Use
  Company Number: 200612370BWH

PATIENT
  Age: 36 Year
  Sex: Female

DRUGS (1)
  1. CIPRO XR [Suspect]
     Indication: URINARY TRACT INFECTION
     Dosage: 1000 MG, QD, ORAL
     Route: 048
     Dates: start: 20060410, end: 20060412

REACTIONS (6)
  - ARTHROPATHY [None]
  - JOINT SWELLING [None]
  - PARAESTHESIA [None]
  - PRURITUS [None]
  - SKIN BURNING SENSATION [None]
  - TENDON DISORDER [None]
